FAERS Safety Report 20705691 (Version 1)
Quarter: 2022Q2

REPORT INFORMATION
  Report Type: Spontaneous
  Country: US (occurrence: None)
  Receive Date: 20220412
  Receipt Date: 20220412
  Transmission Date: 20220721
  Serious: Yes (Other)
  Sender: FDA-Public Use
  Company Number: None

PATIENT
  Age: 57 Year
  Sex: Female
  Weight: 67.5 kg

DRUGS (1)
  1. KETOCONAZOLE [Suspect]
     Active Substance: KETOCONAZOLE
     Indication: Seborrhoeic dermatitis
     Dosage: OTHER STRENGTH : OUNCES;?OTHER QUANTITY : 1 OUNCE(S);?OTHER FREQUENCY : 3X WEEKLY;?
     Route: 061
     Dates: start: 20220303, end: 20220405

REACTIONS (2)
  - Hair texture abnormal [None]
  - Wrong technique in product usage process [None]

NARRATIVE: CASE EVENT DATE: 20220405
